FAERS Safety Report 8343678-2 (Version None)
Quarter: 2012Q2

REPORT INFORMATION
  Report Type: 
  Country: None (occurrence: None)
  Receive Date: 20120508
  Receipt Date: 20120502
  Transmission Date: 20120825
  Serious: Yes (Hospitalization)
  Sender: FDA-Public Use
  Company Number: FR-B.I. PHARMACEUTICALS,INC./RIDGEFIELD-2012-FF-00115FF

PATIENT
  Sex: Male

DRUGS (4)
  1. CATAPRES [Suspect]
     Indication: PRODUCT USED FOR UNKNOWN INDICATION
     Dosage: 0.075 MG
     Route: 048
     Dates: start: 20090101, end: 20111021
  2. CONCERTA [Suspect]
     Dosage: 36 MG
     Route: 048
     Dates: start: 20120401
  3. CONCERTA [Suspect]
     Indication: PRODUCT USED FOR UNKNOWN INDICATION
     Dosage: 36 MG
     Route: 048
     Dates: start: 20111019, end: 20111020
  4. RISPERDAL [Suspect]
     Indication: PRODUCT USED FOR UNKNOWN INDICATION
     Dosage: 1 MG
     Route: 048
     Dates: start: 20090101, end: 20111120

REACTIONS (1)
  - DYSKINESIA [None]
